FAERS Safety Report 24306442 (Version 1)
Quarter: 2024Q3

REPORT INFORMATION
  Report Type: Spontaneous
  Country: US (occurrence: US)
  Receive Date: 20240911
  Receipt Date: 20240911
  Transmission Date: 20241017
  Serious: Yes (Other)
  Sender: MYLAN
  Company Number: US-MYLANLABS-2024M1081808

PATIENT
  Age: 56 Year
  Sex: Male

DRUGS (10)
  1. TRIAMCINOLONE [Suspect]
     Active Substance: TRIAMCINOLONE
     Indication: Retinal disorder
     Dosage: UNK
  2. TRIAMCINOLONE [Suspect]
     Active Substance: TRIAMCINOLONE
     Indication: Haemangioblastoma
  3. PROPRANOLOL [Suspect]
     Active Substance: PROPRANOLOL HYDROCHLORIDE
     Indication: Retinal disorder
     Dosage: UNK, RECEIVED 50?G/0.05ML SPACED 6 WEEKS APART; TWO DOSES
  4. PROPRANOLOL [Suspect]
     Active Substance: PROPRANOLOL HYDROCHLORIDE
     Indication: Haemangioblastoma
  5. BEVACIZUMAB [Suspect]
     Active Substance: BEVACIZUMAB
     Indication: Retinal disorder
     Dosage: UNK
  6. BEVACIZUMAB [Suspect]
     Active Substance: BEVACIZUMAB
     Indication: Haemangioblastoma
  7. RANIBIZUMAB [Suspect]
     Active Substance: RANIBIZUMAB
     Indication: Retinal disorder
     Dosage: UNK
  8. RANIBIZUMAB [Suspect]
     Active Substance: RANIBIZUMAB
     Indication: Haemangioblastoma
  9. AFLIBERCEPT [Suspect]
     Active Substance: AFLIBERCEPT
     Indication: Retinal disorder
     Dosage: UNK
  10. AFLIBERCEPT [Suspect]
     Active Substance: AFLIBERCEPT
     Indication: Haemangioblastoma

REACTIONS (2)
  - Drug ineffective [Unknown]
  - Off label use [Unknown]
